FAERS Safety Report 5968241-X (Version None)
Quarter: 2008Q4

REPORT INFORMATION
  Report Type: 
  Country: None (occurrence: None)
  Receive Date: 20081119
  Receipt Date: 20081107
  Transmission Date: 20090506
  Serious: Yes (Hospitalization)
  Sender: FDA-Public Use
  Company Number: 200814192

PATIENT
  Age: 14 Year
  Sex: Male

DRUGS (4)
  1. PRIVIGEN [Suspect]
     Indication: INFECTION
     Dosage: 30 G Q1MO IV; 30 G Q1MO IV
     Route: 042
     Dates: start: 20080701
  2. PRIVIGEN [Suspect]
     Indication: SELECTIVE IGG SUBCLASS DEFICIENCY
     Dosage: 30 G Q1MO IV; 30 G Q1MO IV
     Route: 042
     Dates: start: 20080701
  3. PRIVIGEN [Suspect]
     Indication: INFECTION
     Dosage: 30 G Q1MO IV; 30 G Q1MO IV
     Route: 042
     Dates: start: 20080801
  4. PRIVIGEN [Suspect]
     Indication: SELECTIVE IGG SUBCLASS DEFICIENCY
     Dosage: 30 G Q1MO IV; 30 G Q1MO IV
     Route: 042
     Dates: start: 20080801

REACTIONS (2)
  - INFUSION RELATED REACTION [None]
  - TACHYCARDIA [None]
